FAERS Safety Report 6826392-1 (Version None)
Quarter: 2010Q3

REPORT INFORMATION
  Report Type: 
  Country: None (occurrence: None)
  Receive Date: 20100709
  Receipt Date: 20100630
  Transmission Date: 20110219
  Serious: Yes (Other)
  Sender: FDA-Public Use
  Company Number: DE-TEVA-239900ISR

PATIENT
  Age: 76 Year
  Sex: Female

DRUGS (4)
  1. SIMVASTATIN [Suspect]
     Route: 048
  2. PANTOPRAZOLE [Suspect]
  3. HYDROCHLOROTHIAZIDE [Suspect]
     Route: 048
  4. LEVOTHYROXINE SODIUM [Suspect]

REACTIONS (1)
  - JAW DISORDER [None]
